FAERS Safety Report 18030811 (Version 1)
Quarter: 2020Q3

REPORT INFORMATION
  Report Type: Spontaneous
  Country: US (occurrence: US)
  Receive Date: 20200715
  Receipt Date: 20200715
  Transmission Date: 20201103
  Serious: No
  Sender: FDA-Public Use
  Company Number: US-SHIRE-US202022445

PATIENT
  Sex: Female

DRUGS (1)
  1. CUVITRU [Suspect]
     Active Substance: HUMAN IMMUNOGLOBULIN G
     Indication: PRODUCT USED FOR UNKNOWN INDICATION
     Route: 065

REACTIONS (6)
  - Injury [Unknown]
  - Infusion site extravasation [Recovered/Resolved]
  - Fat tissue decreased [Unknown]
  - Infusion site pain [Recovered/Resolved]
  - Infusion site reaction [Recovered/Resolved]
  - Poor venous access [Recovered/Resolved]
